FAERS Safety Report 5669266-4 (Version None)
Quarter: 2008Q1

REPORT INFORMATION
  Report Type: 
  Country: None (occurrence: None)
  Receive Date: 20080317
  Receipt Date: 20080306
  Transmission Date: 20080703
  Serious: Yes (Hospitalization)
  Sender: FDA-Public Use
  Company Number: US-ELI_LILLY_AND_COMPANY-US200803001295

PATIENT
  Age: 41 Year
  Sex: Male

DRUGS (4)
  1. ZYPREXA [Suspect]
     Indication: SCHIZOPHRENIA
     Dosage: 15 MG, UNK
     Dates: start: 20060301, end: 20060301
  2. ZYPREXA [Suspect]
     Dosage: 20 MG, UNK
     Dates: start: 20060301, end: 20060301
  3. MOTRIN [Concomitant]
     Indication: PAIN
  4. DIPHENHYDRAMINE HCL [Concomitant]
     Indication: INSOMNIA

REACTIONS (4)
  - DIABETES MELLITUS [None]
  - HOSPITALISATION [None]
  - HYPERGLYCAEMIA [None]
  - WEIGHT INCREASED [None]
